FAERS Safety Report 23848665 (Version 4)
Quarter: 2024Q4

REPORT INFORMATION
  Report Type: Report from Study
  Country: CA (occurrence: CA)
  Receive Date: 20240513
  Receipt Date: 20241225
  Transmission Date: 20250114
  Serious: Yes (Hospitalization, Other)
  Sender: GLAXOSMITHKLINE
  Company Number: CA-GLAXOSMITHKLINE-CA2024032262

PATIENT

DRUGS (9)
  1. MEPOLIZUMAB [Suspect]
     Active Substance: MEPOLIZUMAB
     Indication: Asthma
     Dosage: 100 MG, Q4W,EVERY 4 WEEKS
     Route: 058
     Dates: start: 20231122
  2. MEPOLIZUMAB [Suspect]
     Active Substance: MEPOLIZUMAB
     Indication: Asthma
     Dosage: 100 MG, Q4W
     Route: 058
  3. MEPOLIZUMAB [Suspect]
     Active Substance: MEPOLIZUMAB
     Indication: Product used for unknown indication
     Dosage: 100 MG, Q4W
  4. MEPOLIZUMAB [Suspect]
     Active Substance: MEPOLIZUMAB
     Indication: Asthma
     Dosage: 100 MG, Q4W
     Route: 058
  5. VENTOLIN [Concomitant]
     Active Substance: ALBUTEROL SULFATE
     Indication: Product used for unknown indication
     Dosage: UNK
  6. ALVESCO [Concomitant]
     Active Substance: CICLESONIDE
     Indication: Product used for unknown indication
     Dosage: 2 PUFF(S), BID
     Dates: start: 202105
  7. GLYCOPYRRONIUM\INDACATEROL [Concomitant]
     Active Substance: GLYCOPYRRONIUM\INDACATEROL
     Indication: Product used for unknown indication
     Dosage: 1 PUFF(S), QD (BREEZHALER 50+110MCG)
     Dates: start: 202105
  8. PREDNISONE [Concomitant]
     Active Substance: PREDNISONE
     Indication: Product used for unknown indication
     Dosage: UNK,PLAN OF ACTION
     Dates: start: 20230428
  9. PREDNISONE [Concomitant]
     Active Substance: PREDNISONE
     Dosage: UNK,PLAN OF ACTION
     Dates: start: 202306

REACTIONS (20)
  - Respiratory syncytial virus infection [Unknown]
  - Oxygen saturation decreased [Unknown]
  - Urinary bladder haemorrhage [Unknown]
  - Catheter placement [Unknown]
  - Haemorrhage urinary tract [Unknown]
  - Respiratory failure [Unknown]
  - Loss of consciousness [Unknown]
  - Fatigue [Unknown]
  - Headache [Recovered/Resolved]
  - Injection site erythema [Recovered/Resolved]
  - Injection site swelling [Recovered/Resolved]
  - Pyrexia [Recovered/Resolved]
  - Myalgia [Recovered/Resolved]
  - Movement disorder [Unknown]
  - Abdominal pain [Unknown]
  - Blood urine present [Unknown]
  - Dyspnoea [Unknown]
  - Cough [Unknown]
  - Loss of personal independence in daily activities [Unknown]
  - Heart rate increased [Unknown]

NARRATIVE: CASE EVENT DATE: 20240326
